FAERS Safety Report 6588049-4 (Version None)
Quarter: 2010Q1

REPORT INFORMATION
  Report Type: 
  Country: None (occurrence: None)
  Receive Date: 20100202
  Receipt Date: 20090827
  Transmission Date: 20100710
  Serious: No
  Sender: FDA-Public Use
  Company Number: 2009-00585

PATIENT
  Age: 58 Year
  Sex: Female
  Weight: 81.6475 kg

DRUGS (3)
  1. ZICAM ALLERGY RELIEF NASAL GEL [Suspect]
     Dosage: EVERY 4TO6HRS SEVERALDAYS
     Dates: start: 20081101, end: 20081101
  2. MULTI-VITAMIN [Concomitant]
  3. GLUCOSAMINE AND CHONDROITIN [Concomitant]

REACTIONS (2)
  - AGEUSIA [None]
  - ANOSMIA [None]
